FAERS Safety Report 5677348-6 (Version None)
Quarter: 2008Q1

REPORT INFORMATION
  Report Type: 
  Country: None (occurrence: None)
  Receive Date: 20080324
  Receipt Date: 20080318
  Transmission Date: 20080703
  Serious: No
  Sender: FDA-Public Use
  Company Number: US-JNJFOC-20080304829

PATIENT
  Age: 31 Year
  Sex: Male

DRUGS (6)
  1. RISPERDAL CONSTA [Suspect]
     Indication: SCHIZOPHRENIA, PARANOID TYPE
     Route: 030
  2. RISPERDAL [Suspect]
     Indication: DRUG USE FOR UNKNOWN INDICATION
     Route: 048
  3. INVEGA [Suspect]
     Indication: SCHIZOPHRENIA, PARANOID TYPE
  4. ZOLOFT [Concomitant]
     Indication: SCHIZOPHRENIA, PARANOID TYPE
     Route: 048
  5. ZYPREXA [Concomitant]
     Indication: SCHIZOPHRENIA, PARANOID TYPE
     Route: 048
  6. COGETIN [Concomitant]
     Route: 048

REACTIONS (4)
  - AKATHISIA [None]
  - ANTISOCIAL BEHAVIOUR [None]
  - DISTURBANCE IN ATTENTION [None]
  - EATING DISORDER [None]
